FAERS Safety Report 13725926 (Version 3)
Quarter: 2017Q3

REPORT INFORMATION
  Report Type: Spontaneous
  Country: US (occurrence: US)
  Receive Date: 20170706
  Receipt Date: 20170717
  Transmission Date: 20171127
  Serious: Yes (Hospitalization, Other)
  Sender: FDA-Public Use
  Company Number: PHEH2017US020181

PATIENT
  Age: 62 Year
  Sex: Male

DRUGS (1)
  1. GILENYA [Suspect]
     Active Substance: FINGOLIMOD HYDROCHLORIDE
     Indication: RELAPSING-REMITTING MULTIPLE SCLEROSIS
     Dosage: 0.5 MG, QD (ONCE DAILY)
     Route: 048
     Dates: start: 20150101, end: 20170628

REACTIONS (10)
  - Pulmonary mass [Unknown]
  - Gait disturbance [Unknown]
  - Thinking abnormal [Unknown]
  - Lung cancer metastatic [Unknown]
  - Central nervous system lesion [Unknown]
  - Lung neoplasm malignant [Unknown]
  - Central nervous system infection [Unknown]
  - Cognitive disorder [Unknown]
  - Conversion disorder [Unknown]
  - Cranial nerve palsies multiple [Unknown]

NARRATIVE: CASE EVENT DATE: 20170629
